FAERS Safety Report 23512672 (Version 1)
Quarter: 2024Q1

REPORT INFORMATION
  Report Type: Spontaneous
  Country: US (occurrence: US)
  Receive Date: 20240212
  Receipt Date: 20240212
  Transmission Date: 20240409
  Serious: No
  Sender: FDA-Public Use
  Company Number: US-ALCON LABORATORIES-ALC2023US004183

PATIENT
  Sex: Male

DRUGS (2)
  1. RHOPRESSA [Suspect]
     Active Substance: NETARSUDIL MESYLATE
     Indication: Product used for unknown indication
     Dosage: 1 DROP IN LEFT EYE, ONCE A DAY DURING NIGHT TIME
     Route: 047
  2. TIMOLOL MALEATE [Concomitant]
     Active Substance: TIMOLOL MALEATE
     Indication: Product used for unknown indication
     Dosage: IN THE DAY TIME FROM PAST 1 YEAR
     Route: 047

REACTIONS (1)
  - Headache [Recovered/Resolved]
